FAERS Safety Report 5190725-5 (Version None)
Quarter: 2006Q4

REPORT INFORMATION
  Report Type: 
  Country: None (occurrence: None)
  Receive Date: 20061222
  Receipt Date: 20061214
  Transmission Date: 20070319
  Serious: Yes (Hospitalization)
  Sender: FDA-Public Use
  Company Number: GB-ROCHE-475004

PATIENT
  Age: 48 Year
  Sex: Male
  Weight: 69.4 kg

DRUGS (4)
  1. CAPECITABINE [Suspect]
     Dosage: GIVEN FOR 14 DAYS FOLLOWED FY A WEEK REST (3 WEEK CYCLE).
     Route: 048
     Dates: start: 20041101
  2. GEMCITABINE [Suspect]
     Route: 042
     Dates: start: 20041101
  3. PROCHLORPERAZINE MALEATE [Concomitant]
     Indication: NAUSEA
     Route: 048
     Dates: start: 20041108
  4. MORPHINE [Concomitant]
     Indication: ANALGESIC THERAPY
     Route: 048
     Dates: start: 20041128, end: 20041128

REACTIONS (3)
  - HAEMOGLOBIN DECREASED [None]
  - MEDICAL DEVICE SITE REACTION [None]
  - OBSTRUCTION GASTRIC [None]
